FAERS Safety Report 6741932-9 (Version None)
Quarter: 2010Q2

REPORT INFORMATION
  Report Type: 
  Country: None (occurrence: None)
  Receive Date: 20100526
  Receipt Date: 20100519
  Transmission Date: 20101027
  Serious: Yes (Hospitalization)
  Sender: FDA-Public Use
  Company Number: B0652437A

PATIENT
  Sex: Female

DRUGS (3)
  1. SEREUPIN [Suspect]
     Indication: INSOMNIA
     Dosage: 12TAB PER DAY
     Route: 048
     Dates: start: 20100214, end: 20100214
  2. ANSIOLIN [Suspect]
     Indication: INSOMNIA
     Dosage: 15ML PER DAY
     Route: 048
     Dates: start: 20100214, end: 20100214
  3. XANAX [Suspect]
     Indication: INSOMNIA
     Route: 048
     Dates: start: 20100214, end: 20100214

REACTIONS (3)
  - CONFUSIONAL STATE [None]
  - DRUG ABUSE [None]
  - SOPOR [None]
